FAERS Safety Report 7676541-0 (Version None)
Quarter: 2011Q3

REPORT INFORMATION
  Report Type: 
  Country: None (occurrence: None)
  Receive Date: 20110805
  Receipt Date: 20110722
  Transmission Date: 20111222
  Serious: Yes (Life-Threatening, Hospitalization)
  Sender: FDA-Public Use
  Company Number: TCI2011A03950

PATIENT
  Age: 83 Year
  Sex: Male

DRUGS (6)
  1. BUFFERIN [Concomitant]
  2. TANATRIL(IMDAPRIL HYDROCHLORIDE) [Concomitant]
  3. MICARDIS [Concomitant]
  4. URIEF(SILODOSIN) [Concomitant]
  5. ACTOS [Suspect]
     Indication: DIABETES MELLITUS
     Dosage: 1 TAB. (1 TAB.,1 IN 1 D) PER ORAL
     Route: 048
     Dates: end: 20110630
  6. BAYASPIRIN(ACETYSALICYLIC ACID) [Concomitant]

REACTIONS (1)
  - BLADDER CANCER [None]
